FAERS Safety Report 8437136-4 (Version None)
Quarter: 2012Q2

REPORT INFORMATION
  Report Type: 
  Country: None (occurrence: None)
  Receive Date: 20120614
  Receipt Date: 20120410
  Transmission Date: 20120825
  Serious: No
  Sender: FDA-Public Use
  Company Number: US-AMGEN-USASP2012022595

PATIENT
  Sex: Female

DRUGS (2)
  1. FLUVAX [Concomitant]
     Dosage: UNK
     Dates: start: 20111014
  2. PROLIA [Suspect]
     Indication: OSTEOPOROSIS POSTMENOPAUSAL
     Dosage: 60 MG, Q6MO
     Dates: start: 20110907

REACTIONS (3)
  - RASH [None]
  - SKIN BURNING SENSATION [None]
  - RASH PRURITIC [None]
